FAERS Safety Report 6266847-4 (Version None)
Quarter: 2009Q3

REPORT INFORMATION
  Report Type: 
  Country: None (occurrence: None)
  Receive Date: 20090714
  Receipt Date: 20071107
  Transmission Date: 20100115
  Serious: Yes (Other)
  Sender: FDA-Public Use
  Company Number: US-ASTRAZENECA-2007UW03801

PATIENT
  Age: 42 Year
  Sex: Female
  Weight: 72.6 kg

DRUGS (35)
  1. SEROQUEL [Suspect]
     Indication: BIPOLAR DISORDER
     Route: 048
     Dates: start: 20000101, end: 20051101
  2. SEROQUEL [Suspect]
     Indication: SCHIZOPHRENIA
     Route: 048
     Dates: start: 20000101, end: 20051101
  3. SEROQUEL [Suspect]
     Indication: DEPRESSION
     Route: 048
     Dates: start: 20000101, end: 20051101
  4. SEROQUEL [Suspect]
     Dosage: 25 - 400 MG
     Route: 048
     Dates: start: 20010405
  5. SEROQUEL [Suspect]
     Dosage: 25 - 400 MG
     Route: 048
     Dates: start: 20010405
  6. SEROQUEL [Suspect]
     Dosage: 25 - 400 MG
     Route: 048
     Dates: start: 20010405
  7. GLUCOTROL [Concomitant]
  8. DEPAKOTE [Concomitant]
     Dosage: 500 MG ONE  IN AM AND TWO IN PM
     Route: 048
  9. LEXAPRO [Concomitant]
     Dosage: 10 MG, 20 MG
     Route: 048
  10. AVANDIA [Concomitant]
     Dosage: THRICE DAILY
  11. LEVOTHYROXINE SODIUM [Concomitant]
  12. VALIUM [Concomitant]
     Dosage: 5 MG, 10 MG
     Route: 048
  13. QUININE SULPHATE [Concomitant]
  14. LITHIUM CARBONATE [Concomitant]
     Dosage: 300 MG ONCE IN MORNING, 600 AT NIGHT
     Route: 048
  15. POTASSIUM CHLORIDE [Concomitant]
  16. NOVOLIN [Concomitant]
     Dosage: 100 U/ML
  17. XANAX [Concomitant]
     Dosage: 1 MG TWICE DAILY, 1 MG THRICE DAILY
  18. PREDNISONE TAB [Concomitant]
     Indication: STATUS ASTHMATICUS
     Dosage: 5 - 20 MG
  19. NEURONTIN [Concomitant]
  20. ALBUTEROL [Concomitant]
     Dosage: 0.09 MG/INH, TWO INHALATION ONCE DAILY AS REQUIRED
  21. BACLOFEN [Concomitant]
  22. ADDERALL 10 [Concomitant]
  23. GLUCOPHAGE [Concomitant]
     Route: 048
  24. FAMOTIDINE [Concomitant]
     Route: 048
  25. AMBIEN [Concomitant]
     Dosage: 10 MG, ONCE AT NIGHT AS REQUIRED
     Route: 048
  26. PROTONIX [Concomitant]
  27. ULTRAM [Concomitant]
  28. SOMA [Concomitant]
  29. SPIRIVA [Concomitant]
  30. PERCOCET [Concomitant]
  31. CYCLOBENZAPRINE HCL [Concomitant]
  32. EFFEXOR [Concomitant]
  33. BEXTRA [Concomitant]
     Dosage: 10 MG, TWICE DAILY AS REQUIRED
     Route: 048
  34. ROBAXIN [Concomitant]
  35. GEODON [Concomitant]
     Dates: start: 20030121

REACTIONS (6)
  - DIABETES MELLITUS [None]
  - DIABETES MELLITUS INADEQUATE CONTROL [None]
  - DIABETIC KETOACIDOSIS [None]
  - DIABETIC NEUROPATHY [None]
  - TYPE 1 DIABETES MELLITUS [None]
  - TYPE 2 DIABETES MELLITUS [None]
